FAERS Safety Report 5743678-2 (Version None)
Quarter: 2008Q2

REPORT INFORMATION
  Report Type: 
  Country: None (occurrence: None)
  Receive Date: 20080516
  Receipt Date: 20080506
  Transmission Date: 20081010
  Serious: Yes (Life-Threatening, Hospitalization)
  Sender: FDA-Public Use
  Company Number: 2006-01905

PATIENT
  Age: 61 Year
  Sex: Male
  Weight: 83 kg

DRUGS (7)
  1. VELCADE [Suspect]
     Indication: T-CELL LYMPHOMA
     Dosage: 3.00 MG, INTRAVENOUS
     Route: 042
     Dates: start: 20060623, end: 20060717
  2. PREDNISONE TAB [Suspect]
     Indication: T-CELL LYMPHOMA
     Dosage: 120.00 MG, INTRAVENOUS
     Route: 042
     Dates: start: 20060623, end: 20060717
  3. CYCLOPHOSPHAMIDE [Suspect]
     Indication: T-CELL LYMPHOMA
     Dosage: 2400.00 MG, INTRAVENOUS
     Route: 042
     Dates: start: 20060623, end: 20060623
  4. DOXIL [Suspect]
     Indication: T-CELL LYMPHOMA
     Dosage: 150.00 MG, INTRAVENOUS
     Route: 042
     Dates: start: 20060623, end: 20060713
  5. ELDISINE [Suspect]
     Indication: T-CELL LYMPHOMA
     Dosage: 4.00 MG, INTRAVENOUS
     Route: 042
     Dates: start: 20060623, end: 20060717
  6. BLEOMYCIN SULFATE [Suspect]
     Indication: T-CELL LYMPHOMA
     Dosage: 10.00 IU, INTRAVENOUS
     Route: 042
     Dates: start: 20060623, end: 20060717
  7. GRANOCYTE 13-34(LENOGRASTIM) INJECTION, 150MG/M2 [Suspect]
     Indication: T-CELL LYMPHOMA
     Dosage: 33.69 MIU, SUBCUTANEOUS
     Route: 058
     Dates: start: 20060623, end: 20060723

REACTIONS (3)
  - HYPONATRAEMIA [None]
  - PSEUDOMONAL SEPSIS [None]
  - TREATMENT FAILURE [None]
